FAERS Safety Report 4696814-3 (Version None)
Quarter: 2005Q2

REPORT INFORMATION
  Report Type: 
  Country: None (occurrence: None)
  Receive Date: 20050620
  Receipt Date: 20050606
  Transmission Date: 20051028
  Serious: Yes (Hospitalization, Other)
  Sender: FDA-Public Use
  Company Number: HQWYE270606JUN05

PATIENT
  Age: 29 Month
  Sex: Female

DRUGS (1)
  1. CHILDREN'S ADVIL [Suspect]
     Indication: EAR PAIN
     Dosage: ORAL
     Route: 048
     Dates: start: 20050407, end: 20050409

REACTIONS (5)
  - ARTHRALGIA [None]
  - CUTANEOUS VASCULITIS [None]
  - HAEMATOMA [None]
  - OEDEMA PERIPHERAL [None]
  - PLATELET COUNT INCREASED [None]
